FAERS Safety Report 22965852 (Version 3)
Quarter: 2023Q4

REPORT INFORMATION
  Report Type: Report from Study
  Country: GB (occurrence: GB)
  Receive Date: 20230921
  Receipt Date: 20231222
  Transmission Date: 20240110
  Serious: Yes (Hospitalization)
  Sender: FDA-Public Use
  Company Number: GB-PFIZER INC-PV202300141750

PATIENT
  Age: 9 Year
  Sex: Male
  Weight: 22 kg

DRUGS (8)
  1. LORLATINIB [Suspect]
     Active Substance: LORLATINIB
     Indication: Neuroblastoma recurrent
     Dosage: VIA PEG ROUTE
     Route: 050
     Dates: start: 20230515, end: 20231124
  2. LORLATINIB [Suspect]
     Active Substance: LORLATINIB
     Dosage: VIA PEG ROUTE
     Route: 050
     Dates: start: 20230815
  3. COTRIMOXAZOLE [Concomitant]
     Active Substance: SULFAMETHOXAZOLE\TRIMETHOPRIM
     Indication: Infection prophylaxis
     Dosage: 260 MG, TWICE A DAY SATURDAY AND SUNDAY, VIA PEG ROUTE
     Route: 050
     Dates: start: 202304, end: 20231126
  4. DOMPERIDONE [Concomitant]
     Active Substance: DOMPERIDONE
     Indication: Gastrooesophageal reflux disease
     Dosage: 8 MG, 3X/DAY, VIA PEG ROUTE
     Route: 050
  5. OMEPRAZOLE [Concomitant]
     Active Substance: OMEPRAZOLE
     Indication: Prophylaxis
     Dosage: 10 MG, 2X/DAY, VIA PEG ROUTE
     Route: 050
     Dates: start: 202305, end: 20231127
  6. FENOFIBRATE [Concomitant]
     Active Substance: FENOFIBRATE
     Indication: Blood cholesterol increased
     Dosage: 67 MG, 1X/DAY, ROUTE -GASTRONOMY
     Route: 050
     Dates: start: 202307
  7. MORPHINE SULFATE [Concomitant]
     Active Substance: MORPHINE SULFATE
     Indication: Pain
     Dosage: 10 MG, 2X/DAY, ROUTE -PEG
     Route: 050
  8. ORAMORPH SR SUSTAINED RELEASE [Concomitant]
     Active Substance: MORPHINE SULFATE
     Indication: Pain
     Dosage: 2 MG, 4-6 HOURLY AS REQUIRED, ROUTE -PEG
     Route: 050

REACTIONS (5)
  - Immunosuppression [Unknown]
  - Pyrexia [Recovered/Resolved]
  - Rhinovirus infection [Recovering/Resolving]
  - Enterovirus infection [Recovering/Resolving]
  - Haemoglobin decreased [Unknown]

NARRATIVE: CASE EVENT DATE: 20230801
